FAERS Safety Report 7723952-0 (Version None)
Quarter: 2011Q3

REPORT INFORMATION
  Report Type: 
  Country: None (occurrence: None)
  Receive Date: 20110901
  Receipt Date: 20110822
  Transmission Date: 20111222
  Serious: Yes (Death, Hospitalization)
  Sender: FDA-Public Use
  Company Number: US-ELI_LILLY_AND_COMPANY-US201108002073

PATIENT
  Sex: Female

DRUGS (10)
  1. XOPENEX [Concomitant]
     Dosage: 0.63 MG, UNKNOWN
  2. FORTEO [Suspect]
     Indication: OSTEOPOROSIS
     Dosage: 20 UG, QD
     Dates: end: 20110801
  3. ADVAIR DISKUS 100/50 [Concomitant]
     Dosage: 1 DF, UNKNOWN
  4. FUROSEMIDE [Concomitant]
     Dosage: 20 MG, UNK
  5. LISINOPRIL [Concomitant]
     Dosage: 5 MG, UNK
  6. AMOXICILINA + ACIDO CLAVULANICO    /02043401/ [Concomitant]
     Dosage: 125 MG, UNKNOWN
  7. LEVAQUIN [Concomitant]
     Dosage: 250 MG, UNKNOWN
  8. PREDNISONE [Concomitant]
     Dosage: 10 MG, UNKNOWN
  9. ALLOPURINOL [Concomitant]
     Dosage: 100 MG, UNK
  10. SPIRIVA [Concomitant]
     Dosage: 18 UG, UNKNOWN

REACTIONS (3)
  - PNEUMONIA [None]
  - CHRONIC OBSTRUCTIVE PULMONARY DISEASE [None]
  - PYREXIA [None]
